FAERS Safety Report 9026465 (Version 1)
Quarter: 2013Q1

REPORT INFORMATION
  Report Type: Spontaneous
  Country: AU (occurrence: None)
  Receive Date: 20121231
  Receipt Date: 20121231
  Transmission Date: 20140127
  Serious: Yes (Other)
  Sender: FDA-Public Use
  Company Number: GAM-279-12-AU

PATIENT
  Age: 31 Year
  Sex: Female

DRUGS (3)
  1. OCTAGAM [Suspect]
     Indication: AUTOIMMUNE HAEMOLYTIC ANAEMIA
     Dosage: 25 G (5X 1/CYCLICAL) INTRAVENOUS (NOT OTHERWISE SPECIFIED)
     Dates: start: 20120412, end: 20120412
  2. PREDNISOLONE [Concomitant]
  3. PANTOPRAZOLE [Concomitant]

REACTIONS (6)
  - Chills [None]
  - Oxygen saturation decreased [None]
  - Cold sweat [None]
  - Suspected transmission of an infectious agent via product [None]
  - Serratia sepsis [None]
  - Sepsis [None]
